FAERS Safety Report 20501944 (Version 1)
Quarter: 2022Q1

REPORT INFORMATION
  Report Type: Spontaneous
  Country: US (occurrence: None)
  Receive Date: 20220219
  Receipt Date: 20220219
  Transmission Date: 20220424
  Serious: Yes (Disabling, Other)
  Sender: FDA-Public Use
  Company Number: None

PATIENT
  Age: 65 Year
  Sex: Female
  Weight: 71.1 kg

DRUGS (7)
  1. OZEMPIC [Suspect]
     Active Substance: SEMAGLUTIDE
     Indication: Type 2 diabetes mellitus
     Dosage: FREQUENCY : WEEKLY;?
     Route: 058
     Dates: start: 20211215, end: 20220216
  2. OZEMPIC [Suspect]
     Active Substance: SEMAGLUTIDE
     Indication: Colitis
  3. VITAMIN D [Concomitant]
     Active Substance: VITAMIN D NOS
  4. LEVOTHYROXINE [Concomitant]
     Active Substance: LEVOTHYROXINE
  5. OZEMPIC [Concomitant]
     Active Substance: SEMAGLUTIDE
  6. ALBUTEROL [Concomitant]
     Active Substance: ALBUTEROL
  7. NETIPOT [Concomitant]

REACTIONS (6)
  - Gait inability [None]
  - Impaired driving ability [None]
  - Disturbance in attention [None]
  - Impaired work ability [None]
  - Fear of falling [None]
  - Abdominal pain upper [None]

NARRATIVE: CASE EVENT DATE: 20220130
